FAERS Safety Report 6911321-2 (Version None)
Quarter: 2010Q3

REPORT INFORMATION
  Report Type: 
  Country: None (occurrence: None)
  Receive Date: 20100806
  Receipt Date: 20100728
  Transmission Date: 20110219
  Serious: No
  Sender: FDA-Public Use
  Company Number: US-JNJFOC-20100708992

PATIENT
  Sex: Female
  Weight: 113.4 kg

DRUGS (8)
  1. FENTANYL CITRATE [Suspect]
     Indication: BACK PAIN
     Route: 062
  2. HYDROCODONE BITARTRATE [Concomitant]
     Indication: PAIN
     Route: 048
  3. METHOCARBAMOL [Concomitant]
     Indication: PAIN
     Dosage: 1-2 FOUR TIMES A DAY
     Route: 048
  4. DICLOFENAC SODIUM [Concomitant]
     Indication: PAIN
     Route: 048
  5. PLAVIX [Concomitant]
     Indication: CARDIAC DISORDER
     Route: 048
  6. ISOSORBID [Concomitant]
     Indication: CARDIAC DISORDER
     Route: 048
  7. LISINOPRIL [Concomitant]
     Indication: CARDIAC DISORDER
     Route: 048
  8. FUROSEMIDE [Concomitant]
     Indication: CARDIAC DISORDER
     Route: 048

REACTIONS (1)
  - WRONG TECHNIQUE IN DRUG USAGE PROCESS [None]
